FAERS Safety Report 4303326-5 (Version None)
Quarter: 2004Q1

REPORT INFORMATION
  Report Type: 
  Country: None (occurrence: None)
  Receive Date: 20040223
  Receipt Date: 20040212
  Transmission Date: 20041129
  Serious: Yes (Other)
  Sender: FDA-Public Use
  Company Number: 2004196018FR

PATIENT
  Age: 58 Year
  Sex: Male

DRUGS (2)
  1. XALATAN [Suspect]
     Dosage: OPTHALMIC
     Route: 047
     Dates: start: 20031101
  2. CARTEOLOL (CARTEOLOL) [Concomitant]

REACTIONS (8)
  - CARDIAC FAILURE [None]
  - EYE REDNESS [None]
  - FATIGUE [None]
  - HIRSUTISM [None]
  - LYMPHATIC DISORDER [None]
  - OCULAR HYPERTENSION [None]
  - OEDEMA PERIPHERAL [None]
  - WEIGHT INCREASED [None]
